FAERS Safety Report 19965804 (Version 1)
Quarter: 2021Q4

REPORT INFORMATION
  Report Type: Spontaneous
  Country: IN (occurrence: CN)
  Receive Date: 20211018
  Receipt Date: 20211018
  Transmission Date: 20220303
  Serious: Yes (Life-Threatening, Hospitalization, Other)
  Sender: FDA-Public Use
  Company Number: CN-MLMSERVICE-20210402-2818275-1

PATIENT
  Age: 46 Year
  Sex: Male

DRUGS (3)
  1. GEMCITABINE HYDROCHLORIDE [Suspect]
     Active Substance: GEMCITABINE HYDROCHLORIDE
     Indication: Undifferentiated nasopharyngeal carcinoma
     Dosage: UNK UNK, CYCLICAL
     Route: 065
     Dates: start: 20200229
  2. SINTILIMAB [Suspect]
     Active Substance: SINTILIMAB
     Indication: Undifferentiated nasopharyngeal carcinoma
     Dosage: UNK, CYCLICAL
     Route: 065
     Dates: start: 20200229
  3. NEDAPLATIN [Suspect]
     Active Substance: NEDAPLATIN
     Indication: Undifferentiated nasopharyngeal carcinoma
     Dosage: UNK, CYCLICAL
     Route: 065
     Dates: start: 20200229

REACTIONS (2)
  - Myelosuppression [Recovered/Resolved]
  - Off label use [Unknown]

NARRATIVE: CASE EVENT DATE: 20200229
